FAERS Safety Report 11749200 (Version 2)
Quarter: 2016Q1

REPORT INFORMATION
  Report Type: Spontaneous
  Country: JP (occurrence: JP)
  Receive Date: 20151118
  Receipt Date: 20160210
  Transmission Date: 20160525
  Serious: Yes (Other)
  Sender: FDA-Public Use
  Company Number: JP-ROCHE-1662762

PATIENT

DRUGS (2)
  1. ACTEMRA [Suspect]
     Active Substance: TOCILIZUMAB
     Indication: GRAFT VERSUS HOST DISEASE IN GASTROINTESTINAL TRACT
     Dosage: DOSAGE UNCERTAIN.
     Route: 041
  2. CELLCEPT [Concomitant]
     Active Substance: MYCOPHENOLATE MOFETIL\MYCOPHENOLATE MOFETIL HYDROCHLORIDE
     Dosage: DOSAGE UNCERTAIN.
     Route: 048

REACTIONS (3)
  - Off label use [Unknown]
  - Gastrointestinal haemorrhage [Recovering/Resolving]
  - Coagulation factor XIII level decreased [Unknown]
